FAERS Safety Report 6282150-0 (Version None)
Quarter: 2009Q3

REPORT INFORMATION
  Report Type: 
  Country: None (occurrence: None)
  Receive Date: 20090724
  Receipt Date: 20090714
  Transmission Date: 20100115
  Serious: Yes (Hospitalization)
  Sender: FDA-Public Use
  Company Number: JP-PFIZER INC-2009241800

PATIENT
  Age: 72 Year

DRUGS (7)
  1. SUNITINIB MALATE [Suspect]
     Indication: GASTRIC CANCER
     Dosage: 25 MG, 1X/DAY, 2 WEEKS ON AND 2 WEEKS OFF;
     Route: 048
     Dates: start: 20090708
  2. *TS-1 [Suspect]
     Indication: GASTRIC CANCER
     Dosage: 50 MG, 2X/DAY, 3 WEEKS ON AND 1 WEEK OFF;
     Route: 048
     Dates: start: 20090707
  3. CISPLATIN [Suspect]
     Indication: GASTRIC CANCER
     Dosage: 85 MG, 1X/DAY, EVERY 4 WEEKS
     Route: 042
     Dates: start: 20090707
  4. DICLOFENAC SODIUM [Concomitant]
     Route: 048
  5. CYTOTEC [Concomitant]
     Dosage: UNK
     Route: 048
  6. ZOFRAN [Concomitant]
     Dosage: UNK
     Route: 048
  7. SENNOSIDE A+B CALCIUM [Concomitant]
     Dosage: UNK
     Route: 048

REACTIONS (1)
  - BLOOD CREATININE INCREASED [None]
